FAERS Safety Report 8837894 (Version 1)
Quarter: 2012Q4

REPORT INFORMATION
  Report Type: 
  Country: US (occurrence: US)
  Receive Date: 20121012
  Receipt Date: 20121012
  Transmission Date: 20130627
  Serious: Yes (Hospitalization)
  Sender: FDA-Public Use
  Company Number: US-BAYER-2012-103506

PATIENT
  Age: 19 Year
  Sex: Female
  Weight: 53.06 kg

DRUGS (11)
  1. YAZ [Suspect]
  2. GIANVI [Suspect]
  3. CHLORHEXIDINE GLUCONATE [Concomitant]
     Dosage: 0.12 %, UNK
  4. HYDROCODONE/ACETAMINOPHEN [Concomitant]
  5. CLINDAMYCIN [Concomitant]
  6. DILAUDID [Concomitant]
     Indication: PLEURITIC PAIN
     Route: 042
  7. OXYIR [Concomitant]
  8. IBUPROFEN [Concomitant]
  9. TYLENOL [Concomitant]
  10. MOTRIN [Concomitant]
  11. OXYCODONE [Concomitant]

REACTIONS (1)
  - Pulmonary embolism [None]
